FAERS Safety Report 12157171 (Version 1)
Quarter: 2016Q1

REPORT INFORMATION
  Report Type: Spontaneous
  Country: US (occurrence: US)
  Receive Date: 20160308
  Receipt Date: 20160308
  Transmission Date: 20160526
  Serious: No
  Sender: FDA-Public Use
  Company Number: US-LUPIN PHARMACEUTICALS INC.-2015-04426

PATIENT

DRUGS (1)
  1. BIMATOPROST OPHTHALMIC SOLUTION [Suspect]
     Active Substance: BIMATOPROST
     Indication: INTRAOCULAR PRESSURE INCREASED
     Route: 065

REACTIONS (1)
  - Drug ineffective [Unknown]
